FAERS Safety Report 7312020-8 (Version None)
Quarter: 2011Q1

REPORT INFORMATION
  Report Type: 
  Country: None (occurrence: None)
  Receive Date: 20110224
  Receipt Date: 20110130
  Transmission Date: 20110831
  Serious: No
  Sender: FDA-Public Use
  Company Number: US-B.I. PHARMACEUTICALS,INC./RIDGEFIELD-2011-BP-03148BP

PATIENT
  Age: 62 Year
  Sex: Female

DRUGS (5)
  1. METOPROLOL TARTRATE [Concomitant]
     Indication: HYPERTENSION
     Route: 048
     Dates: start: 20110101
  2. KADIAN [Concomitant]
     Indication: PAIN
     Dosage: 90 MG
     Route: 048
     Dates: start: 20040101
  3. LEVOTHYROXINE SODIUM [Concomitant]
     Indication: THYROID DISORDER
     Route: 048
     Dates: start: 19980101
  4. PRADAXA [Suspect]
     Indication: ATRIAL FIBRILLATION
     Dosage: 300 MG
     Route: 048
     Dates: start: 20110101
  5. MS IR [Concomitant]
     Indication: PAIN
     Route: 048
     Dates: start: 20040101

REACTIONS (3)
  - HORDEOLUM [None]
  - EYE PRURITUS [None]
  - EYELID OEDEMA [None]
